FAERS Safety Report 9976193 (Version 2)
Quarter: 2014Q1

REPORT INFORMATION
  Report Type: Spontaneous
  Country: CA (occurrence: CA)
  Receive Date: 20140306
  Receipt Date: 20140318
  Transmission Date: 20141002
  Serious: Yes (Hospitalization, Other)
  Sender: FDA-Public Use
  Company Number: CA-B.I. PHARMACEUTICALS,INC./RIDGEFIELD-2014-BI-09564CN

PATIENT
  Age: 80 Year
  Sex: Female

DRUGS (6)
  1. TRAJENTA [Suspect]
     Indication: TYPE 2 DIABETES MELLITUS
     Dosage: 0.0137 MG
     Route: 065
     Dates: start: 20130111, end: 20140228
  2. XARELTO [Concomitant]
     Indication: ATRIAL FIBRILLATION
     Route: 065
  3. LASIX [Concomitant]
     Indication: CARDIAC FAILURE
     Route: 048
     Dates: end: 20140228
  4. LASIX [Concomitant]
     Route: 048
     Dates: start: 20140228
  5. OXYGEN [Concomitant]
     Route: 065
  6. METFORMIN [Concomitant]
     Indication: TYPE 2 DIABETES MELLITUS
     Dosage: 500 MG
     Route: 065

REACTIONS (2)
  - Cardiac failure [Recovered/Resolved]
  - Cardiac failure [Recovered/Resolved]
